FAERS Safety Report 15848765 (Version 1)
Quarter: 2019Q1

REPORT INFORMATION
  Report Type: Report from Study
  Country: AU (occurrence: AU)
  Receive Date: 20190121
  Receipt Date: 20190121
  Transmission Date: 20190417
  Serious: Yes (Other)
  Sender: FDA-Public Use
  Company Number: AU-ROCHE-2248660

PATIENT

DRUGS (2)
  1. RITUXIMAB. [Suspect]
     Active Substance: RITUXIMAB
     Indication: NON-HODGKIN^S LYMPHOMA
     Route: 042
  2. RITUXIMAB. [Suspect]
     Active Substance: RITUXIMAB
     Indication: NON-HODGKIN^S LYMPHOMA
     Dosage: RADIOLABELED RITUXIMAB SUPPLIED AS A SOLUTION WITH A MAXIMUM VOLUME OF 0.05 ML IN A 10-ML VIAL
     Route: 065

REACTIONS (3)
  - Bone marrow failure [Unknown]
  - Neutrophil count abnormal [Unknown]
  - Platelet disorder [Unknown]
